FAERS Safety Report 6318460-8 (Version None)
Quarter: 2009Q3

REPORT INFORMATION
  Report Type: 
  Country: None (occurrence: None)
  Receive Date: 20090821
  Receipt Date: 20090810
  Transmission Date: 20100115
  Serious: Yes (Hospitalization)
  Sender: FDA-Public Use
  Company Number: NZ-ELI_LILLY_AND_COMPANY-NZ200908001723

PATIENT
  Age: 35 Year
  Sex: Female

DRUGS (2)
  1. ZYPREXA [Suspect]
     Indication: MAJOR DEPRESSION
     Dosage: 20 MG, UNK
  2. VENLAFAXINE HCL [Concomitant]
     Dosage: 300 MG, UNK

REACTIONS (5)
  - BLOOD CHOLESTEROL INCREASED [None]
  - FASTING [None]
  - HOSPITALISATION [None]
  - MAJOR DEPRESSION [None]
  - WEIGHT INCREASED [None]
